FAERS Safety Report 16281730 (Version 1)
Quarter: 2019Q2

REPORT INFORMATION
  Report Type: Spontaneous
  Country: FR (occurrence: FR)
  Receive Date: 20190507
  Receipt Date: 20190507
  Transmission Date: 20190711
  Serious: Yes (Hospitalization)
  Sender: FDA-Public Use
  Company Number: IND-FR-009507513-1904FRA012284

PATIENT
  Age: 72 Year
  Sex: Male

DRUGS (2)
  1. ESMERON [Suspect]
     Active Substance: ROCURONIUM BROMIDE
     Indication: INDUCTION OF ANAESTHESIA
     Dosage: 80 MILLIGRAM, QD
     Route: 042
     Dates: start: 20190407, end: 20190407
  2. HYPNOMIDATE [Suspect]
     Active Substance: ETOMIDATE SULFATE
     Indication: INDUCTION OF ANAESTHESIA
     Dosage: 30 MILLIGRAM, QD
     Route: 042
     Dates: start: 20190407, end: 20190407

REACTIONS (3)
  - Hypotension [Not Recovered/Not Resolved]
  - Livedo reticularis [Not Recovered/Not Resolved]
  - Bronchospasm [Not Recovered/Not Resolved]

NARRATIVE: CASE EVENT DATE: 20190407
